FAERS Safety Report 4520990-6 (Version None)
Quarter: 2004Q4

REPORT INFORMATION
  Report Type: 
  Country: None (occurrence: None)
  Receive Date: 20041208
  Receipt Date: 20041020
  Transmission Date: 20050328
  Serious: Yes (Death, Hospitalization)
  Sender: FDA-Public Use
  Company Number: 200413251JP

PATIENT
  Age: 41 Year
  Sex: Female
  Weight: 58.5 kg

DRUGS (8)
  1. ARAVA [Suspect]
     Indication: RHEUMATOID ARTHRITIS
     Route: 048
     Dates: start: 20040607, end: 20041008
  2. PREDONINE [Concomitant]
     Route: 048
  3. FAMOTIDINE [Concomitant]
     Indication: GASTRITIS
     Route: 048
     Dates: start: 20040607, end: 20041014
  4. FAMOTIDINE [Concomitant]
     Indication: PROPHYLAXIS
     Route: 048
     Dates: start: 20040607, end: 20041014
  5. ROCALTROL [Concomitant]
     Indication: OSTEOPOROSIS
     Route: 048
     Dates: start: 20040812, end: 20041014
  6. PREDNISOLONE [Concomitant]
     Indication: INFLAMMATION
     Route: 048
     Dates: end: 20041014
  7. LOXONIN [Concomitant]
     Route: 048
     Dates: end: 20040811
  8. RHEUMATREX [Concomitant]
     Route: 048
     Dates: start: 20010116, end: 20010531

REACTIONS (14)
  - ANEURYSM [None]
  - BRAIN MASS [None]
  - CONVULSION [None]
  - HEADACHE [None]
  - HYPERTENSION [None]
  - HYPERVENTILATION [None]
  - HYPOAESTHESIA [None]
  - INSOMNIA [None]
  - LOSS OF CONSCIOUSNESS [None]
  - MALAISE [None]
  - NAUSEA [None]
  - PRURITUS [None]
  - SUBARACHNOID HAEMORRHAGE [None]
  - VOMITING [None]
